FAERS Safety Report 10016812 (Version 1)
Quarter: 2014Q1

REPORT INFORMATION
  Report Type: Spontaneous
  Country: US (occurrence: US)
  Receive Date: 20140318
  Receipt Date: 20140318
  Transmission Date: 20141002
  Serious: Yes (Death, Other)
  Sender: FDA-Public Use
  Company Number: PHHY2014US029457

PATIENT
  Age: 31 Year
  Sex: Female

DRUGS (5)
  1. CISPLATIN [Suspect]
     Indication: MIXED HEPATOCELLULAR CHOLANGIOCARCINOMA
     Dosage: 25 MG/M2, ON DAY 1 AND DAY 8 OF A 21-DAY CYCLE
  2. GEMCITABINE [Suspect]
     Indication: MIXED HEPATOCELLULAR CHOLANGIOCARCINOMA
     Dosage: 1000 MG/M2, ON DAY 1 AND DAY 8 OF A 21-DAY CYCLE
  3. LEUCOVORIN CALCIUM [Suspect]
     Indication: MIXED HEPATOCELLULAR CHOLANGIOCARCINOMA
  4. FLUOROURACIL [Suspect]
     Indication: MIXED HEPATOCELLULAR CHOLANGIOCARCINOMA
  5. OXALIPLATIN [Suspect]
     Indication: MIXED HEPATOCELLULAR CHOLANGIOCARCINOMA

REACTIONS (7)
  - Death [Fatal]
  - Mixed hepatocellular cholangiocarcinoma [Unknown]
  - Malignant neoplasm progression [Unknown]
  - Infusion related reaction [Unknown]
  - Tachycardia [Unknown]
  - Vomiting [Unknown]
  - Dyspnoea [Unknown]
